FAERS Safety Report 6261985-4 (Version None)
Quarter: 2009Q3

REPORT INFORMATION
  Report Type: 
  Country: None (occurrence: None)
  Receive Date: 20090707
  Receipt Date: 20090707
  Transmission Date: 20100115
  Serious: Yes (Hospitalization, Other)
  Sender: FDA-Public Use
  Company Number: None

PATIENT
  Age: 31 Year
  Sex: Female
  Weight: 72.1219 kg

DRUGS (5)
  1. CELEXA [Suspect]
     Indication: DEPRESSION
     Dosage: 60 MG 1 PER DAY PO
     Route: 048
     Dates: start: 20020315, end: 20090701
  2. TRAMADOL HCL [Suspect]
     Indication: REITER'S SYNDROME
     Dosage: 50 MG 2 UP TO 3X DAILY PO
     Route: 048
     Dates: start: 20080915, end: 20090704
  3. NEXIUM [Concomitant]
  4. XANAX [Concomitant]
  5. TRAZODONE HCL [Concomitant]

REACTIONS (9)
  - ALTERED STATE OF CONSCIOUSNESS [None]
  - BALANCE DISORDER [None]
  - CONFUSIONAL STATE [None]
  - COORDINATION ABNORMAL [None]
  - DELIRIUM [None]
  - HEPATITIS A [None]
  - IRRITABILITY [None]
  - SEROTONIN SYNDROME [None]
  - TRANSIENT ISCHAEMIC ATTACK [None]
